FAERS Safety Report 8405875-7 (Version None)
Quarter: 2012Q2

REPORT INFORMATION
  Report Type: 
  Country: None (occurrence: None)
  Receive Date: 20120604
  Receipt Date: 20120531
  Transmission Date: 20120825
  Serious: Yes (Other)
  Sender: FDA-Public Use
  Company Number: CA-BAYER-2012-053247

PATIENT
  Age: 35 Year
  Sex: Female

DRUGS (1)
  1. MIRENA [Suspect]
     Dosage: UNK
     Dates: start: 20111201

REACTIONS (5)
  - PELVIC INFLAMMATORY DISEASE [None]
  - MALAISE [None]
  - SEPTIC SHOCK [None]
  - GENITAL INFECTION BACTERIAL [None]
  - DISCOMFORT [None]
